FAERS Safety Report 6783451-X (Version None)
Quarter: 2010Q2

REPORT INFORMATION
  Report Type: 
  Country: None (occurrence: None)
  Receive Date: 20100622
  Receipt Date: 20100614
  Transmission Date: 20101027
  Serious: Yes (Hospitalization)
  Sender: FDA-Public Use
  Company Number: JP-BRISTOL-MYERS SQUIBB COMPANY-15150485

PATIENT
  Age: 64 Year
  Sex: Male

DRUGS (1)
  1. HYDREA [Suspect]
     Indication: THROMBOCYTOPENIA
     Route: 048
     Dates: start: 20100429, end: 20100614

REACTIONS (1)
  - INTERSTITIAL LUNG DISEASE [None]
